FAERS Safety Report 10576459 (Version 2)
Quarter: 2014Q4

REPORT INFORMATION
  Report Type: Spontaneous
  Country: US (occurrence: US)
  Receive Date: 20141111
  Receipt Date: 20141114
  Transmission Date: 20150529
  Serious: Yes (Hospitalization)
  Sender: FDA-Public Use
  Company Number: CHPA2014US014833

PATIENT
  Age: 82 Year
  Sex: Female

DRUGS (2)
  1. EX-LAX REGULAR STRENGTH CHOCOLATED STIMULANT LAXATIVE [Suspect]
     Active Substance: SENNOSIDES
     Indication: LAXATIVE SUPPORTIVE CARE
     Dosage: 0.5 DF, UNK
     Route: 048
     Dates: start: 20141022, end: 20141022
  2. DULCOLAX [Concomitant]
     Active Substance: BISACODYL OR DOCUSATE SODIUM
     Indication: LAXATIVE SUPPORTIVE CARE
     Route: 065

REACTIONS (6)
  - Underdose [Unknown]
  - Syncope [Recovering/Resolving]
  - Blood pressure decreased [Recovering/Resolving]
  - Asthenia [Not Recovered/Not Resolved]
  - Colitis ischaemic [Recovering/Resolving]
  - Diarrhoea [Recovering/Resolving]

NARRATIVE: CASE EVENT DATE: 201410
